FAERS Safety Report 8101514-3 (Version None)
Quarter: 2012Q1

REPORT INFORMATION
  Report Type: 
  Country: None (occurrence: None)
  Receive Date: 20120129
  Receipt Date: 20110907
  Transmission Date: 20120608
  Serious: No
  Sender: FDA-Public Use
  Company Number: US-ABBOTT-11P-163-0852566-00

PATIENT
  Sex: Female

DRUGS (7)
  1. LAMICTAL [Concomitant]
     Indication: BIPOLAR DISORDER
     Route: 048
  2. HUMIRA [Suspect]
     Indication: PSORIASIS
  3. FOLIC ACID [Concomitant]
     Indication: PSORIATIC ARTHROPATHY
  4. CLONIDINE [Concomitant]
     Indication: HYPERHIDROSIS
     Route: 048
  5. EFFEXOR [Concomitant]
     Indication: BIPOLAR DISORDER
     Route: 048
  6. METHOTREXATE [Concomitant]
     Indication: PSORIATIC ARTHROPATHY
  7. HUMIRA [Suspect]
     Indication: PSORIATIC ARTHROPATHY
     Dates: start: 20100201, end: 20110501

REACTIONS (7)
  - INJECTION SITE WARMTH [None]
  - PSORIATIC ARTHROPATHY [None]
  - PAIN [None]
  - SINUSITIS [None]
  - INJECTION SITE REACTION [None]
  - INJECTION SITE ERYTHEMA [None]
  - INJECTION SITE PAPULE [None]
